FAERS Safety Report 22794376 (Version 2)
Quarter: 2024Q1

REPORT INFORMATION
  Report Type: Report from Study
  Country: CA (occurrence: CA)
  Receive Date: 20230807
  Receipt Date: 20240322
  Transmission Date: 20240410
  Serious: Yes (Other)
  Sender: FDA-Public Use
  Company Number: CA-UCBSA-2023038481

PATIENT
  Age: 68 Year
  Sex: Male

DRUGS (7)
  1. CETIRIZINE HYDROCHLORIDE [Suspect]
     Active Substance: CETIRIZINE HYDROCHLORIDE
     Indication: Premedication
     Dosage: GIVEN FROM 10-40 MILLIGRAM ORALLY
     Route: 048
  2. CETIRIZINE HYDROCHLORIDE [Suspect]
     Active Substance: CETIRIZINE HYDROCHLORIDE
     Indication: Off label use
  3. IBUPROFEN [Suspect]
     Active Substance: IBUPROFEN
     Indication: Premedication
     Dosage: 800 MILLIGRAM
     Route: 048
  4. ACETAMINOPHEN [Suspect]
     Active Substance: ACETAMINOPHEN
     Indication: Premedication
     Dosage: 975 MILLIGRAM
     Route: 048
  5. FAMOTIDINE [Suspect]
     Active Substance: FAMOTIDINE
     Indication: Premedication
     Dosage: 20 MILLIGRAM
     Route: 048
  6. DEXAMETHASONE [Suspect]
     Active Substance: DEXAMETHASONE
     Indication: Premedication
     Dosage: INCREASED (UPTO 20 MG ORALLY OR INTRAVENOUSLY)
     Route: 065
  7. ONDANSETRON [Suspect]
     Active Substance: ONDANSETRON
     Indication: Premedication
     Dosage: UNK
     Route: 065

REACTIONS (3)
  - Cytokine release syndrome [Unknown]
  - Off label use [Unknown]
  - Prescribed overdose [Unknown]
